FAERS Safety Report 8452265 (Version 5)
Quarter: 2012Q4

REPORT INFORMATION
  Report Type: 
  Country: GB (occurrence: GB)
  Receive Date: 20120311
  Receipt Date: 20121126
  Transmission Date: 20130627
  Serious: Yes (Other)
  Sender: FDA-Public Use
  Company Number: PHFR2012GB001101

PATIENT
  Age: 65 Year
  Sex: Female
  Weight: 62.3 kg

DRUGS (4)
  1. CLOZARIL [Suspect]
     Indication: SCHIZOPHRENIA
     Dosage: 325 mg, daily
     Route: 048
     Dates: start: 20010701
  2. CLOZARIL [Suspect]
     Dosage: UNK UKN, UNK
     Route: 048
     Dates: start: 20120925, end: 20121117
  3. MIRTAZAPINE [Concomitant]
     Indication: DEPRESSION
     Dosage: 15 mg, daily
     Route: 048
     Dates: start: 20120207
  4. FYBOGEL [Concomitant]
     Indication: CONSTIPATION
     Route: 048

REACTIONS (9)
  - Blood alkaline phosphatase increased [Unknown]
  - Antipsychotic drug level increased [Unknown]
  - White blood cell count increased [Not Recovered/Not Resolved]
  - Platelet count increased [Not Recovered/Not Resolved]
  - Neutrophil count increased [Not Recovered/Not Resolved]
  - Coeliac disease [Not Recovered/Not Resolved]
  - Mean cell haemoglobin decreased [Unknown]
  - Haemoglobin decreased [Not Recovered/Not Resolved]
  - Differential white blood cell count abnormal [Unknown]
